FAERS Safety Report 9880759 (Version 4)
Quarter: 2014Q4

REPORT INFORMATION
  Report Type: Spontaneous
  Country: FR (occurrence: None)
  Receive Date: 20140205
  Receipt Date: 20141008
  Transmission Date: 20150529
  Serious: Yes (Hospitalization)
  Sender: FDA-Public Use
  Company Number: 2014-0262-SPO

PATIENT
  Age: 57 Year
  Sex: Female

DRUGS (2)
  1. ESTIMA [Suspect]
     Active Substance: PROGESTERONE
     Indication: PRODUCT USED FOR UNKNOWN INDICATION
     Dosage: ORAL
     Route: 048
  2. OESTRODOSE [Suspect]
     Active Substance: ESTRADIOL
     Indication: PRODUCT USED FOR UNKNOWN INDICATION
     Route: 003

REACTIONS (12)
  - Cerebrovascular arteriovenous malformation [None]
  - Intraventricular haemorrhage [None]
  - Brain compression [None]
  - Diplopia [None]
  - Brain stem haematoma [None]
  - Hydrocephalus [None]
  - Coma scale abnormal [None]
  - Cerebral artery embolism [None]
  - Cerebellar syndrome [None]
  - IIIrd nerve paralysis [None]
  - Cerebral haemorrhage [None]
  - VIth nerve paralysis [None]

NARRATIVE: CASE EVENT DATE: 20131112
